FAERS Safety Report 4781708-5 (Version None)
Quarter: 2005Q3

REPORT INFORMATION
  Report Type: 
  Country: None (occurrence: None)
  Receive Date: 20050927
  Receipt Date: 20050907
  Transmission Date: 20060218
  Serious: Yes (Life-Threatening, Hospitalization)
  Sender: FDA-Public Use
  Company Number: PAR_0187_2005

PATIENT
  Age: 17 Year
  Sex: Male

DRUGS (4)
  1. IBUPROFEN [Suspect]
     Indication: CYSTIC FIBROSIS
     Dosage: 1000 MG  BID
  2. ANTIBIOTICS [Concomitant]
  3. VITAMINS [Concomitant]
  4. PANCREATIC ENZYMES [Concomitant]

REACTIONS (6)
  - ABDOMINAL PAIN [None]
  - BARIUM SWALLOW ABNORMAL [None]
  - HAEMODYNAMIC INSTABILITY [None]
  - OESOPHAGEAL DISORDER [None]
  - OESOPHAGEAL ULCER HAEMORRHAGE [None]
  - RECTAL HAEMORRHAGE [None]
